FAERS Safety Report 15151683 (Version 1)
Quarter: 2018Q3

REPORT INFORMATION
  Report Type: Spontaneous
  Country: US (occurrence: US)
  Receive Date: 20180619
  Receipt Date: 20180619
  Transmission Date: 20181010
  Serious: Yes (Hospitalization)
  Sender: FDA-Public Use
  Company Number: None

PATIENT
  Age: 68 Year
  Sex: Male
  Weight: 91.35 kg

DRUGS (10)
  1. TRAZODONE [Concomitant]
     Active Substance: TRAZODONE HYDROCHLORIDE
  2. LAMOTRIGINE 100MG [Concomitant]
     Active Substance: LAMOTRIGINE
  3. ROSUVASTATIN 5MG [Concomitant]
     Active Substance: ROSUVASTATIN
  4. METOPROLOL SR 50MG [Concomitant]
  5. LEVOTHYROXINE50MCG [Concomitant]
  6. ZONISAMIDE. [Suspect]
     Active Substance: ZONISAMIDE
     Indication: DIZZINESS
     Route: 048
     Dates: start: 20180612, end: 20180612
  7. LOSARTAN 100MG [Concomitant]
     Active Substance: LOSARTAN
  8. INSULIN LISPRO [Concomitant]
     Active Substance: INSULIN LISPRO
  9. INSULIN GLARGINE [Concomitant]
     Active Substance: INSULIN GLARGINE
  10. MEMEANTINE 10MG [Concomitant]

REACTIONS (2)
  - Visual impairment [None]
  - Vision blurred [None]

NARRATIVE: CASE EVENT DATE: 20180612
